FAERS Safety Report 4877115-7 (Version None)
Quarter: 2005Q4

REPORT INFORMATION
  Report Type: 
  Country: None (occurrence: None)
  Receive Date: 20051206
  Receipt Date: 20050819
  Transmission Date: 20060501
  Serious: No
  Sender: FDA-Public Use
  Company Number: USA0508105933

PATIENT
  Age: 68 Year
  Sex: Female

DRUGS (9)
  1. CYMBALTA [Suspect]
     Indication: DIABETIC NEUROPATHY
     Dosage: 30 MG/2 DAY
     Dates: start: 20050501
  2. TOPROL-XL [Concomitant]
  3. NEXIUM [Concomitant]
  4. GLYBURIDE [Concomitant]
  5. LASIX [Concomitant]
  6. VICODIN [Concomitant]
  7. EXTRA STRENGTH TYLENOL [Concomitant]
  8. ELAVIL [Concomitant]
  9. NEURONTIN [Concomitant]

REACTIONS (10)
  - ANAEMIA [None]
  - BLOOD GLUCOSE INCREASED [None]
  - BLOOD PRESSURE INCREASED [None]
  - FATIGUE [None]
  - GLYCOSYLATED HAEMOGLOBIN INCREASED [None]
  - HAEMOGLOBIN DECREASED [None]
  - HYPERHIDROSIS [None]
  - INITIAL INSOMNIA [None]
  - NAUSEA [None]
  - PRURITUS [None]
